FAERS Safety Report 23216836 (Version 1)
Quarter: 2023Q4

REPORT INFORMATION
  Report Type: Spontaneous
  Country: RU (occurrence: RU)
  Receive Date: 20231122
  Receipt Date: 20231122
  Transmission Date: 20240109
  Serious: Yes (Other)
  Sender: FDA-Public Use
  Company Number: RU-SANDOZ-SDZ2023RU056857

PATIENT
  Sex: Female
  Weight: 89 kg

DRUGS (3)
  1. METHOTREXATE [Suspect]
     Active Substance: METHOTREXATE
     Indication: Psoriasis
     Dosage: UNK
     Route: 030
     Dates: start: 20230924, end: 20230924
  2. Desloratadine vertex [Concomitant]
     Indication: Psoriasis
     Dosage: PER OS
     Route: 065
     Dates: start: 20230921
  3. HYDROXYZINE CANON [Concomitant]
     Indication: Sedative therapy
     Dosage: PER OS
     Route: 065
     Dates: start: 20230321

REACTIONS (4)
  - Dizziness [Recovering/Resolving]
  - Nausea [Recovering/Resolving]
  - Abdominal pain [Recovering/Resolving]
  - Muscular weakness [Recovering/Resolving]

NARRATIVE: CASE EVENT DATE: 20230924
